FAERS Safety Report 7535820-8 (Version None)
Quarter: 2011Q2

REPORT INFORMATION
  Report Type: 
  Country: None (occurrence: None)
  Receive Date: 20110607
  Receipt Date: 20110607
  Transmission Date: 20111010
  Serious: Yes (Death, Hospitalization)
  Sender: FDA-Public Use
  Company Number: None

PATIENT
  Sex: Male
  Weight: 105 kg

DRUGS (2)
  1. DAUNORUBICIN HCL [Suspect]
     Dosage: 390 MG
     Dates: end: 20110521
  2. CYTARABINE [Suspect]
     Dosage: 1505 MG
     Dates: end: 20110526

REACTIONS (4)
  - MULTI-ORGAN FAILURE [None]
  - DYSPNOEA [None]
  - CEREBROVASCULAR ACCIDENT [None]
  - MENTAL STATUS CHANGES [None]
